FAERS Safety Report 5964723-5 (Version None)
Quarter: 2008Q4

REPORT INFORMATION
  Report Type: 
  Country: None (occurrence: None)
  Receive Date: 20081124
  Receipt Date: 20081124
  Transmission Date: 20090506
  Serious: Yes (Life-Threatening)
  Sender: FDA-Public Use
  Company Number: None

PATIENT
  Age: 60 Year
  Sex: Female
  Weight: 88.4514 kg

DRUGS (1)
  1. REQUIP [Suspect]
     Indication: RESTLESS LEGS SYNDROME
     Dosage: 0.5 MG BEFORE BEDTIME
     Dates: start: 20061101, end: 20070228

REACTIONS (9)
  - CHEST PAIN [None]
  - DYSPHAGIA [None]
  - FALL [None]
  - FEELING ABNORMAL [None]
  - INJURY [None]
  - MUSCLE SPASMS [None]
  - NAUSEA [None]
  - SYNCOPE [None]
  - VOMITING [None]
